FAERS Safety Report 7331940-1 (Version None)
Quarter: 2011Q1

REPORT INFORMATION
  Report Type: 
  Country: None (occurrence: None)
  Receive Date: 20110228
  Receipt Date: 20110228
  Transmission Date: 20110831
  Serious: Yes (Disabling)
  Sender: FDA-Public Use
  Company Number: None

PATIENT

DRUGS (6)
  1. GENTAMICIN [Suspect]
     Indication: BIOPSY VAGINA
     Dosage: MAR + APR '78 + MEGADOSE IN 1987
     Dates: start: 19780401
  2. GENTAMICIN [Suspect]
     Indication: HYSTERECTOMY
     Dosage: MAR + APR '78 + MEGADOSE IN 1987
     Dates: start: 19780401
  3. GENTAMICIN [Suspect]
     Indication: BIOPSY VAGINA
     Dosage: MAR + APR '78 + MEGADOSE IN 1987
     Dates: start: 19780301
  4. GENTAMICIN [Suspect]
     Indication: HYSTERECTOMY
     Dosage: MAR + APR '78 + MEGADOSE IN 1987
     Dates: start: 19780301
  5. GENTAMICIN [Suspect]
     Indication: BIOPSY VAGINA
     Dosage: MAR + APR '78 + MEGADOSE IN 1987
     Dates: start: 19870101
  6. GENTAMICIN [Suspect]
     Indication: HYSTERECTOMY
     Dosage: MAR + APR '78 + MEGADOSE IN 1987
     Dates: start: 19870101

REACTIONS (5)
  - BALANCE DISORDER [None]
  - NYSTAGMUS [None]
  - MITRAL VALVE PROLAPSE [None]
  - MOTION SICKNESS [None]
  - TOXICITY TO VARIOUS AGENTS [None]
